FAERS Safety Report 6595560-9 (Version None)
Quarter: 2010Q1

REPORT INFORMATION
  Report Type: 
  Country: None (occurrence: None)
  Receive Date: 20100222
  Receipt Date: 20100222
  Transmission Date: 20100710
  Serious: Yes (Life-Threatening)
  Sender: FDA-Public Use
  Company Number: None

PATIENT
  Age: 49 Year
  Sex: Female
  Weight: 87.5442 kg

DRUGS (3)
  1. AVELOX [Suspect]
     Indication: BACTERIAL INFECTION
     Dosage: 400 MG 1 TABLET DAILY FOR 2 DAYS
     Dates: start: 20100113, end: 20100113
  2. AVELOX [Suspect]
     Indication: LUNG INFECTION
     Dosage: 400 MG 1 TABLET DAILY FOR 2 DAYS
     Dates: start: 20100113, end: 20100113
  3. AVELOX [Suspect]
     Indication: SINUSITIS
     Dosage: 400 MG 1 TABLET DAILY FOR 2 DAYS
     Dates: start: 20100113, end: 20100113

REACTIONS (7)
  - DYSPHAGIA [None]
  - ERYTHEMA [None]
  - HYPOAESTHESIA ORAL [None]
  - LOCAL SWELLING [None]
  - MALAISE [None]
  - TENDON PAIN [None]
  - URTICARIA [None]
